FAERS Safety Report 4343010-5 (Version None)
Quarter: 2004Q1

REPORT INFORMATION
  Report Type: 
  Country: None (occurrence: None)
  Receive Date: 20040325
  Receipt Date: 20040202
  Transmission Date: 20041129
  Serious: No
  Sender: FDA-Public Use
  Company Number: USA030126691

PATIENT
  Age: 54 Year
  Sex: Female
  Weight: 53 kg

DRUGS (8)
  1. FORTEO [Suspect]
     Indication: OSTEOPOROSIS
     Dosage: 20 UG/1 DAY
     Dates: start: 20021201
  2. MULTI-VITAMINS [Concomitant]
  3. METHOTREXATE [Concomitant]
  4. FOLIC ACID [Concomitant]
  5. CALCIUM [Concomitant]
  6. ZOCOR [Concomitant]
  7. CELEBREX [Concomitant]
  8. PREMARIN [Concomitant]

REACTIONS (12)
  - CHEST WALL PAIN [None]
  - CONTUSION [None]
  - FEELING HOT [None]
  - HOT FLUSH [None]
  - INJECTION SITE ERYTHEMA [None]
  - INJECTION SITE HAEMORRHAGE [None]
  - INJECTION SITE PAIN [None]
  - LIVER DISORDER [None]
  - MEDICATION ERROR [None]
  - NAUSEA [None]
  - NEPHROLITHIASIS [None]
  - RENAL CYST [None]
